FAERS Safety Report 10071914 (Version 2)
Quarter: 2014Q2

REPORT INFORMATION
  Report Type: Spontaneous
  Country: US (occurrence: US)
  Receive Date: 20140411
  Receipt Date: 20140506
  Transmission Date: 20141212
  Serious: No
  Sender: FDA-Public Use
  Company Number: US-SHIRE-US201401275

PATIENT
  Sex: Male
  Weight: 48.73 kg

DRUGS (5)
  1. VYVANSE [Suspect]
     Indication: ATTENTION DEFICIT/HYPERACTIVITY DISORDER
     Dosage: 60 MG, 1X/DAY:QD
     Route: 048
     Dates: end: 201403
  2. VYVANSE [Suspect]
     Dosage: 30 MG, 1X/DAY:QD
     Route: 048
     Dates: start: 20140303, end: 20140325
  3. VYVANSE [Suspect]
     Dosage: UNK, UNKNOWN
     Route: 048
     Dates: start: 20120621
  4. INTUNIV [Suspect]
     Indication: ATTENTION DEFICIT/HYPERACTIVITY DISORDER
     Dosage: 1 MG, 1X/DAY:QD
     Route: 048
     Dates: start: 20140303, end: 2014
  5. INTUNIV [Suspect]
     Dosage: 2 MG, 1X/DAY:QD
     Route: 048
     Dates: start: 2014, end: 20140403

REACTIONS (5)
  - Educational problem [Recovering/Resolving]
  - Hostility [Unknown]
  - Tic [Recovered/Resolved]
  - Aggression [Not Recovered/Not Resolved]
  - Irritability [Unknown]
